FAERS Safety Report 11805679 (Version 1)
Quarter: 2015Q4

REPORT INFORMATION
  Report Type: Spontaneous
  Country: GB (occurrence: GB)
  Receive Date: 20151207
  Receipt Date: 20151207
  Transmission Date: 20160305
  Serious: Yes (Hospitalization)
  Sender: FDA-Public Use
  Company Number: GB-ACCORD-035906

PATIENT
  Age: 57 Year
  Sex: Female
  Weight: 62.6 kg

DRUGS (10)
  1. SERETIDE [Concomitant]
     Active Substance: FLUTICASONE FUROATE\SALMETEROL XINAFOATE
     Dosage: 250 EVOHALER.
     Route: 055
  2. ADCAL-D3 [Concomitant]
     Active Substance: CALCIUM CARBONATE\CHOLECALCIFEROL
  3. PREDNISOLONE. [Concomitant]
     Active Substance: PREDNISOLONE
     Dosage: LONG TERM.
  4. SERTRALINE [Suspect]
     Active Substance: SERTRALINE HYDROCHLORIDE
     Indication: DEPRESSION
     Dosage: PATIENT PREVIOUSLY 100 MG OD FROM 01-MAR-2014 TO UNKNOWN DATE OF OCT-2015 AND INCREASED TO 150 MG
     Route: 048
     Dates: start: 201510
  5. LANSOPRAZOLE. [Suspect]
     Active Substance: LANSOPRAZOLE
     Indication: GASTROOESOPHAGEAL REFLUX DISEASE
     Route: 048
     Dates: start: 20060601, end: 20151106
  6. ENOXAPARIN [Concomitant]
     Active Substance: ENOXAPARIN
     Indication: PULMONARY EMBOLISM
     Route: 058
  7. DIAZEPAM. [Concomitant]
     Active Substance: DIAZEPAM
  8. TIOTROPIUM/TIOTROPIUM BROMIDE [Concomitant]
     Route: 055
  9. CARBOCISTEINE/CARBOCISTEINE LYSINE/CARBOCISTEINE SODIUM [Concomitant]
  10. SALBUTAMOL [Concomitant]
     Active Substance: ALBUTEROL
     Dosage: EVOHALER.
     Route: 055

REACTIONS (3)
  - Sepsis [Unknown]
  - Hyponatraemia [Not Recovered/Not Resolved]
  - Dyspnoea [Unknown]

NARRATIVE: CASE EVENT DATE: 20151106
